FAERS Safety Report 16709257 (Version 3)
Quarter: 2019Q4

REPORT INFORMATION
  Report Type: Report from Study
  Country: US (occurrence: US)
  Receive Date: 20190816
  Receipt Date: 20191213
  Transmission Date: 20200122
  Serious: Yes (Other)
  Sender: FDA-Public Use
  Company Number: PHEH2019US033786

PATIENT
  Sex: Female

DRUGS (1)
  1. ENTRESTO [Suspect]
     Active Substance: SACUBITRIL\VALSARTAN
     Indication: CARDIAC FAILURE
     Dosage: UNK
     Route: 048

REACTIONS (11)
  - Loss of consciousness [Unknown]
  - Concussion [Unknown]
  - Injury [Unknown]
  - Cough [Unknown]
  - Skin abrasion [Unknown]
  - Swelling face [Unknown]
  - Blood cholesterol increased [Unknown]
  - Headache [Unknown]
  - Fall [Unknown]
  - Thyroid disorder [Unknown]
  - Nasopharyngitis [Unknown]
